FAERS Safety Report 19040536 (Version 6)
Quarter: 2021Q3

REPORT INFORMATION
  Report Type: Report from Study
  Country: JP (occurrence: JP)
  Receive Date: 20210322
  Receipt Date: 20210713
  Transmission Date: 20211014
  Serious: Yes (Hospitalization)
  Sender: FDA-Public Use
  Company Number: JP-ROCHE-2417711

PATIENT
  Age: 78 Year
  Sex: Male
  Weight: 69 kg

DRUGS (9)
  1. TRAZODONE HYDROCHLORIDE. [Concomitant]
     Active Substance: TRAZODONE HYDROCHLORIDE
     Indication: INSOMNIA
     Route: 048
     Dates: start: 20190913
  2. CARBOPLATIN. [Suspect]
     Active Substance: CARBOPLATIN
     Indication: LUNG ADENOCARCINOMA
     Route: 041
     Dates: start: 20190911
  3. METHYCOBAL [Concomitant]
     Active Substance: METHYLCOBALAMIN
     Indication: PREMEDICATION
     Dosage: DOSE: 2A
     Route: 030
     Dates: start: 20190819
  4. DOPS [Concomitant]
     Active Substance: DROXIDOPA
     Indication: PARKINSONISM
     Dosage: BEGINNING OF DOSAGE DAY: TRIAL BEGINNING FORMER
     Route: 048
  5. ALVESCO [Concomitant]
     Active Substance: CICLESONIDE
     Indication: CHRONIC OBSTRUCTIVE PULMONARY DISEASE
     Dosage: DOSE: ONE INHALATION AND BEGINNING OF DOSAGE DAY: TRIAL BEGINNING FORMER
     Route: 055
  6. ATEZOLIZUMAB. [Suspect]
     Active Substance: ATEZOLIZUMAB
     Indication: LUNG ADENOCARCINOMA
     Route: 041
     Dates: start: 20190911, end: 20210127
  7. THYRADIN?S [Suspect]
     Active Substance: LEVOTHYROXINE
     Indication: HYPOTHYROIDISM
     Route: 048
     Dates: start: 20200120
  8. CORTRIL [Suspect]
     Active Substance: HYDROCORTISONE
     Indication: ADRENAL INSUFFICIENCY
     Route: 048
     Dates: start: 20200210
  9. ALIMTA [Suspect]
     Active Substance: PEMETREXED DISODIUM
     Indication: LUNG ADENOCARCINOMA
     Route: 041
     Dates: start: 20190911

REACTIONS (3)
  - Syncope [Recovered/Resolved]
  - Polymyalgia rheumatica [Recovering/Resolving]
  - Rhabdomyolysis [Recovered/Resolved]

NARRATIVE: CASE EVENT DATE: 20190916
